FAERS Safety Report 13181722 (Version 3)
Quarter: 2017Q1

REPORT INFORMATION
  Report Type: Spontaneous
  Country: TR (occurrence: TR)
  Receive Date: 20170202
  Receipt Date: 20170316
  Transmission Date: 20170428
  Serious: Yes (Death, Hospitalization, Other)
  Sender: FDA-Public Use
  Company Number: TR-ALEXION PHARMACEUTICALS INC.-A201700873

PATIENT
  Age: 19 Year
  Sex: Male

DRUGS (2)
  1. SOLIRIS [Suspect]
     Active Substance: ECULIZUMAB
     Indication: HAEMOLYTIC URAEMIC SYNDROME
     Dosage: 900 MG, QW FOR 4 WEEKS
     Route: 042
     Dates: start: 20160405, end: 20170112
  2. SOLIRIS [Suspect]
     Active Substance: ECULIZUMAB
     Dosage: 1200 MG, Q2W
     Route: 042
     Dates: start: 20160505

REACTIONS (3)
  - Cardio-respiratory arrest [Fatal]
  - General physical health deterioration [Unknown]
  - Treatment noncompliance [Unknown]

NARRATIVE: CASE EVENT DATE: 201612
